FAERS Safety Report 5510292-3 (Version None)
Quarter: 2007Q4

REPORT INFORMATION
  Report Type: 
  Country: None (occurrence: None)
  Receive Date: 20071108
  Receipt Date: 20071031
  Transmission Date: 20080405
  Serious: Yes (Hospitalization)
  Sender: FDA-Public Use
  Company Number: IL-JNJFOC-20071006706

PATIENT
  Sex: Male

DRUGS (1)
  1. RISPERDAL [Suspect]
     Indication: SCHIZOPHRENIA
     Dosage: FOR 2 YEARS

REACTIONS (12)
  - ARTERIAL OCCLUSIVE DISEASE [None]
  - CONFUSIONAL STATE [None]
  - CONVULSION [None]
  - DELUSION [None]
  - DYSPNOEA [None]
  - EMOTIONAL DISORDER [None]
  - GAMBLING [None]
  - HALLUCINATION [None]
  - HYPOAESTHESIA [None]
  - RENAL DISORDER [None]
  - SELF INJURIOUS BEHAVIOUR [None]
  - THINKING ABNORMAL [None]
